FAERS Safety Report 16366190 (Version 1)
Quarter: 2019Q2

REPORT INFORMATION
  Report Type: Spontaneous
  Country: CN (occurrence: CN)
  Receive Date: 20190529
  Receipt Date: 20190529
  Transmission Date: 20190711
  Serious: Yes (Other)
  Sender: FDA-Public Use
  Company Number: CN-ROCHE-2321182

PATIENT

DRUGS (35)
  1. CYCLOPHOSPHAMIDE. [Concomitant]
     Active Substance: CYCLOPHOSPHAMIDE
     Indication: B-CELL LYMPHOMA
     Route: 065
     Dates: start: 20150813, end: 2015
  2. CYCLOPHOSPHAMIDE. [Concomitant]
     Active Substance: CYCLOPHOSPHAMIDE
     Route: 065
     Dates: start: 2019, end: 2019
  3. VINCRISTINE [Concomitant]
     Active Substance: VINCRISTINE
     Route: 065
     Dates: start: 20160722
  4. VINCRISTINE [Concomitant]
     Active Substance: VINCRISTINE
     Route: 065
     Dates: start: 20171028
  5. PREDNISONE. [Concomitant]
     Active Substance: PREDNISONE
     Route: 065
     Dates: start: 20150907, end: 2015
  6. DOXORUBICIN [Concomitant]
     Active Substance: DOXORUBICIN
     Route: 065
     Dates: start: 20160722
  7. DOXORUBICIN [Concomitant]
     Active Substance: DOXORUBICIN
     Route: 065
     Dates: start: 20170329, end: 2017
  8. DEXAMETHASONE. [Concomitant]
     Active Substance: DEXAMETHASONE
     Indication: B-CELL LYMPHOMA
     Route: 065
     Dates: start: 2019, end: 2019
  9. MABTHERA [Suspect]
     Active Substance: RITUXIMAB
     Route: 065
     Dates: start: 20171028
  10. MABTHERA [Suspect]
     Active Substance: RITUXIMAB
     Route: 065
     Dates: start: 20170329
  11. GEMCITABINE [Concomitant]
     Active Substance: GEMCITABINE\GEMCITABINE HYDROCHLORIDE
     Indication: B-CELL LYMPHOMA
     Route: 065
     Dates: start: 2019, end: 2019
  12. CYCLOPHOSPHAMIDE. [Concomitant]
     Active Substance: CYCLOPHOSPHAMIDE
     Route: 065
     Dates: start: 20171028
  13. PREDNISONE. [Concomitant]
     Active Substance: PREDNISONE
     Route: 065
     Dates: start: 20171028
  14. CISPLATIN. [Concomitant]
     Active Substance: CISPLATIN
     Indication: B-CELL LYMPHOMA
     Route: 065
     Dates: start: 2019, end: 2019
  15. MABTHERA [Suspect]
     Active Substance: RITUXIMAB
     Route: 065
     Dates: start: 2019, end: 2019
  16. VINCRISTINE [Concomitant]
     Active Substance: VINCRISTINE
     Route: 065
     Dates: start: 20150907, end: 2015
  17. VINCRISTINE [Concomitant]
     Active Substance: VINCRISTINE
     Route: 065
     Dates: start: 20170329, end: 2017
  18. DOXORUBICIN [Concomitant]
     Active Substance: DOXORUBICIN
     Route: 065
     Dates: start: 2019, end: 2019
  19. EPIRUBICIN [Concomitant]
     Active Substance: EPIRUBICIN
     Indication: B-CELL LYMPHOMA
     Route: 065
     Dates: start: 2019, end: 2019
  20. GEMCITABINE [Concomitant]
     Active Substance: GEMCITABINE\GEMCITABINE HYDROCHLORIDE
     Indication: LUNG ADENOCARCINOMA
     Route: 065
     Dates: start: 20110122
  21. VINCRISTINE [Concomitant]
     Active Substance: VINCRISTINE
     Route: 065
     Dates: start: 2019, end: 2019
  22. PREDNISONE. [Concomitant]
     Active Substance: PREDNISONE
     Route: 065
     Dates: start: 2019, end: 2019
  23. DOXORUBICIN [Concomitant]
     Active Substance: DOXORUBICIN
     Indication: B-CELL LYMPHOMA
     Route: 065
     Dates: start: 20150907, end: 2015
  24. DOXORUBICIN [Concomitant]
     Active Substance: DOXORUBICIN
     Route: 065
     Dates: start: 20171028
  25. MABTHERA [Suspect]
     Active Substance: RITUXIMAB
     Route: 065
     Dates: start: 2019, end: 2019
  26. CYCLOPHOSPHAMIDE. [Concomitant]
     Active Substance: CYCLOPHOSPHAMIDE
     Route: 065
     Dates: start: 20160722
  27. PREDNISONE. [Concomitant]
     Active Substance: PREDNISONE
     Indication: B-CELL LYMPHOMA
     Route: 065
     Dates: start: 20150813, end: 2015
  28. PREDNISONE. [Concomitant]
     Active Substance: PREDNISONE
     Route: 065
     Dates: start: 20160722
  29. IRINOTECAN [Concomitant]
     Active Substance: IRINOTECAN
     Indication: LUNG ADENOCARCINOMA
     Route: 065
     Dates: start: 20110122
  30. CYCLOPHOSPHAMIDE. [Concomitant]
     Active Substance: CYCLOPHOSPHAMIDE
     Route: 065
     Dates: start: 20170329, end: 2017
  31. VINCRISTINE [Concomitant]
     Active Substance: VINCRISTINE
     Indication: B-CELL LYMPHOMA
     Route: 065
     Dates: start: 20150813, end: 2015
  32. MABTHERA [Suspect]
     Active Substance: RITUXIMAB
     Indication: B-CELL LYMPHOMA
     Route: 065
     Dates: start: 20170329, end: 2017
  33. CYCLOPHOSPHAMIDE. [Concomitant]
     Active Substance: CYCLOPHOSPHAMIDE
     Route: 065
     Dates: start: 20150907, end: 2015
  34. PREDNISONE. [Concomitant]
     Active Substance: PREDNISONE
     Route: 065
     Dates: start: 20170329, end: 2017
  35. LENALIDOMIDE [Concomitant]
     Active Substance: LENALIDOMIDE
     Indication: B-CELL LYMPHOMA
     Route: 065
     Dates: start: 20190428

REACTIONS (17)
  - Enteritis infectious [Unknown]
  - Chest pain [Unknown]
  - Pleural effusion [Unknown]
  - Pleurisy [Unknown]
  - Lung disorder [Unknown]
  - Lung infection [Unknown]
  - Pneumonitis [Unknown]
  - Dysphagia [Unknown]
  - Lung hypoinflation [Unknown]
  - Hypertrophy [Unknown]
  - Pericardial effusion [Unknown]
  - Hepatomegaly [Unknown]
  - Bone marrow failure [Unknown]
  - Oesophageal carcinoma [Unknown]
  - Lymphadenopathy [Unknown]
  - Shock [Unknown]
  - Back pain [Unknown]
